FAERS Safety Report 10074943 (Version 2)
Quarter: 2014Q2

REPORT INFORMATION
  Report Type: Report from Study
  Country: CA (occurrence: CA)
  Receive Date: 20140414
  Receipt Date: 20140604
  Transmission Date: 20141212
  Serious: Yes (Hospitalization)
  Sender: FDA-Public Use
  Company Number: CA-BRISTOL-MYERS SQUIBB COMPANY-20600599

PATIENT
  Age: 59 Year
  Sex: Female

DRUGS (18)
  1. ORENCIA [Suspect]
     Indication: RHEUMATOID ARTHRITIS
     Dosage: 1 DF= 1000 UNITS
     Dates: start: 20121129
  2. METFORMIN [Concomitant]
  3. AMLODIPINE [Concomitant]
  4. HYDROCHLOROTHIAZIDE [Concomitant]
  5. ELAVIL [Concomitant]
  6. APO-RAMIPRIL [Concomitant]
  7. EUROCAL D [Concomitant]
  8. ASPIRIN [Concomitant]
  9. CELEBREX [Concomitant]
  10. HYDROXYCHLOROQUINE [Concomitant]
  11. SALBUTAMOL [Concomitant]
  12. FLOVENT [Concomitant]
  13. ROSUVASTATIN [Concomitant]
  14. IRBESARTAN TABS [Concomitant]
  15. EURO D [Concomitant]
  16. CYCLOBENZAPRINE [Concomitant]
  17. FOLIC ACID [Concomitant]
  18. FLUTICASONE [Concomitant]

REACTIONS (1)
  - Obesity surgery [Unknown]
